FAERS Safety Report 8503154-0 (Version None)
Quarter: 2012Q3

REPORT INFORMATION
  Report Type: 
  Country: None (occurrence: None)
  Receive Date: 20120711
  Receipt Date: 20120706
  Transmission Date: 20120928
  Serious: No
  Sender: FDA-Public Use
  Company Number: US-PFIZER INC-2012163739

PATIENT
  Sex: Female

DRUGS (1)
  1. SUTENT [Suspect]
     Indication: MENINGIOMA
     Dosage: 37.5 MG, (25MG + 12.5MG)

REACTIONS (2)
  - DISEASE PROGRESSION [None]
  - MENINGIOMA [None]
